FAERS Safety Report 8017665-8 (Version None)
Quarter: 2012Q1

REPORT INFORMATION
  Report Type: 
  Country: None (occurrence: None)
  Receive Date: 20120103
  Receipt Date: 20111220
  Transmission Date: 20120608
  Serious: Yes (Hospitalization)
  Sender: FDA-Public Use
  Company Number: FR-JNJFOC-20111209159

PATIENT
  Age: 42 Year
  Sex: Female

DRUGS (3)
  1. REMICADE [Suspect]
     Indication: RHEUMATOID ARTHRITIS
     Dosage: 14TH INFUSION
     Route: 042
     Dates: start: 20110414
  2. PREDNISONE TAB [Concomitant]
     Indication: RHEUMATOID ARTHRITIS
  3. REMICADE [Suspect]
     Route: 042
     Dates: start: 20100601

REACTIONS (3)
  - ACARODERMATITIS [None]
  - DERMO-HYPODERMITIS [None]
  - SUBCUTANEOUS NODULE [None]
